FAERS Safety Report 7276682-6 (Version None)
Quarter: 2011Q1

REPORT INFORMATION
  Report Type: 
  Country: None (occurrence: None)
  Receive Date: 20110204
  Receipt Date: 20110125
  Transmission Date: 20110831
  Serious: Yes (Hospitalization, Other)
  Sender: FDA-Public Use
  Company Number: GB-MERCK-1101GBR00120

PATIENT
  Age: 40 Year
  Sex: Female

DRUGS (4)
  1. BISOPROLOL [Concomitant]
     Route: 065
  2. PRINIVIL [Suspect]
     Route: 048
  3. SPIRONOLACTONE [Concomitant]
     Route: 065
  4. FUROSEMIDE [Concomitant]
     Route: 065

REACTIONS (2)
  - OLIGOHYDRAMNIOS [None]
  - DRUG EXPOSURE DURING PREGNANCY [None]
